FAERS Safety Report 5434302-7 (Version None)
Quarter: 2007Q3

REPORT INFORMATION
  Report Type: 
  Country: None (occurrence: None)
  Receive Date: 20070831
  Receipt Date: 20070823
  Transmission Date: 20080115
  Serious: Yes (Other)
  Sender: FDA-Public Use
  Company Number: PHBS2007BR14168

PATIENT
  Age: 72 Year
  Sex: Female
  Weight: 80 kg

DRUGS (2)
  1. CLONAZEPAM [Concomitant]
     Indication: CONVULSION
     Dosage: 1 MG, BID
     Route: 048
  2. TRILEPTAL [Suspect]
     Indication: TRIGEMINAL NEURALGIA
     Dosage: 150 MG, BID
     Route: 048
     Dates: start: 20070814

REACTIONS (8)
  - ANOREXIA [None]
  - CONFUSIONAL STATE [None]
  - MOUTH HAEMORRHAGE [None]
  - OEDEMA MOUTH [None]
  - PAIN [None]
  - SWELLING FACE [None]
  - TINNITUS [None]
  - VOMITING [None]
